FAERS Safety Report 14586657 (Version 4)
Quarter: 2019Q2

REPORT INFORMATION
  Report Type: Spontaneous
  Country: US (occurrence: US)
  Receive Date: 20180301
  Receipt Date: 20190530
  Transmission Date: 20190711
  Serious: Yes (Death, Hospitalization, Disabling, Other)
  Sender: FDA-Public Use
  Company Number: US-VALIDUS PHARMACEUTICALS LLC-US-2017VAL001666

PATIENT

DRUGS (5)
  1. PROGRAF [Suspect]
     Active Substance: TACROLIMUS\TACROLIMUS ANHYDROUS
     Indication: RENAL TRANSPLANT
     Dosage: 3 MG, QD (IN MORNING)
     Route: 048
  2. LASIX [Suspect]
     Active Substance: FUROSEMIDE
     Indication: PRODUCT USED FOR UNKNOWN INDICATION
     Dosage: UNK
     Route: 065
  3. PROGRAF [Suspect]
     Active Substance: TACROLIMUS\TACROLIMUS ANHYDROUS
     Dosage: 4 MG, QD (IN PM)
     Route: 048
     Dates: start: 20140601
  4. MYFORTIC [Suspect]
     Active Substance: MYCOPHENOLATE SODIUM
     Indication: RENAL TRANSPLANT
     Dosage: 180 MG, TID
     Route: 048
  5. PREDNISONE. [Suspect]
     Active Substance: PREDNISONE
     Indication: RENAL TRANSPLANT
     Dosage: 5 MG, QD
     Route: 048

REACTIONS (12)
  - Pain [Unknown]
  - Manufacturing issue [Unknown]
  - Paronychia [Unknown]
  - Cardiac disorder [Unknown]
  - Product dispensing error [Unknown]
  - Accident [Unknown]
  - Injury [Unknown]
  - Emotional distress [Unknown]
  - End stage renal disease [Unknown]
  - Diabetes mellitus [Unknown]
  - Death [Fatal]
  - Gangrene [Unknown]

NARRATIVE: CASE EVENT DATE: 20161205
